FAERS Safety Report 19269955 (Version 1)
Quarter: 2021Q2

REPORT INFORMATION
  Report Type: Spontaneous
  Country: US (occurrence: US)
  Receive Date: 20210518
  Receipt Date: 20210518
  Transmission Date: 20210717
  Serious: Yes (Other)
  Sender: FDA-Public Use
  Company Number: US-BAYER-2021-141262

PATIENT
  Sex: Male

DRUGS (1)
  1. VITRAKVI [Suspect]
     Active Substance: LAROTRECTINIB
     Indication: SARCOMA
     Dosage: 100 MG, BID
     Route: 048
     Dates: start: 20210401

REACTIONS (1)
  - Lung disorder [Not Recovered/Not Resolved]
